FAERS Safety Report 5810601-1 (Version None)
Quarter: 2008Q3

REPORT INFORMATION
  Report Type: 
  Country: None (occurrence: None)
  Receive Date: 20080715
  Receipt Date: 20080604
  Transmission Date: 20090109
  Serious: Yes (Other)
  Sender: FDA-Public Use
  Company Number: BR-PFIZER INC-2008057032

PATIENT
  Age: 48 Year
  Sex: Male

DRUGS (6)
  1. CAMPTOSAR [Suspect]
     Indication: GASTRIC CANCER
  2. PLATISTINE CS [Suspect]
     Indication: GASTRIC CANCER
  3. KYTRIL [Concomitant]
  4. DECADRON [Concomitant]
  5. BIOVIR [Concomitant]
  6. NEVIRAPINE [Concomitant]

REACTIONS (3)
  - ARTHRALGIA [None]
  - ERYTHEMA MULTIFORME [None]
  - OEDEMA PERIPHERAL [None]
